FAERS Safety Report 10595336 (Version 1)
Quarter: 2014Q4

REPORT INFORMATION
  Report Type: Spontaneous
  Country: GB (occurrence: GB)
  Receive Date: 20141120
  Receipt Date: 20141120
  Transmission Date: 20150529
  Serious: Yes (Disabling)
  Sender: FDA-Public Use
  Company Number: GB-JNJFOC-20141106574

PATIENT
  Age: 39 Year
  Sex: Female

DRUGS (5)
  1. LEVOTHYROXINE [Concomitant]
     Active Substance: LEVOTHYROXINE
     Route: 065
  2. CETIRIZIN [Concomitant]
     Route: 065
  3. ORLISTAT [Concomitant]
     Active Substance: ORLISTAT
     Route: 065
  4. TRIMETHOPRIM. [Concomitant]
     Active Substance: TRIMETHOPRIM
     Route: 065
  5. XARELTO [Suspect]
     Active Substance: RIVAROXABAN
     Indication: THROMBOSIS PROPHYLAXIS
     Route: 048
     Dates: start: 20140815, end: 20141020

REACTIONS (5)
  - Malaise [Unknown]
  - Menometrorrhagia [Recovering/Resolving]
  - Constipation [Recovered/Resolved]
  - Fatigue [Recovering/Resolving]
  - Rectal haemorrhage [Unknown]

NARRATIVE: CASE EVENT DATE: 20140818
